FAERS Safety Report 4445814-7 (Version None)
Quarter: 2004Q3

REPORT INFORMATION
  Report Type: 
  Country: None (occurrence: None)
  Receive Date: 20040910
  Receipt Date: 20040422
  Transmission Date: 20050211
  Serious: Yes (Hospitalization)
  Sender: FDA-Public Use
  Company Number: US-BRISTOL-MYERS SQUIBB COMPANY-12567871

PATIENT
  Age: 64 Year
  Sex: Male
  Weight: 83 kg

DRUGS (14)
  1. CISPLATIN [Suspect]
     Indication: PLEURAL MESOTHELIOMA MALIGNANT
     Route: 042
     Dates: start: 20030217, end: 20030217
  2. PEMETREXED DISODIUM [Suspect]
     Indication: PLEURAL MESOTHELIOMA MALIGNANT
     Route: 042
     Dates: start: 20030217, end: 20030217
  3. FENTANYL [Concomitant]
     Indication: PAIN
     Dates: start: 20030204
  4. MS CONTIN [Concomitant]
     Indication: PAIN
     Dates: start: 20030204
  5. ATIVAN [Concomitant]
     Indication: ANXIETY
     Dates: start: 20030218, end: 20030220
  6. REGLAN [Concomitant]
     Indication: NAUSEA
     Dates: start: 20030218, end: 20030220
  7. DEXAMETHASONE [Concomitant]
     Indication: NAUSEA
     Dates: start: 20030216, end: 20030218
  8. FOLIC ACID [Concomitant]
     Dates: start: 20030207
  9. MAGNESIUM OXIDE [Concomitant]
     Indication: HYPOMAGNESAEMIA
  10. PREVACID [Concomitant]
     Indication: GASTROOESOPHAGEAL REFLUX DISEASE
  11. VIOXX [Concomitant]
     Indication: PAIN
  12. QUININE [Concomitant]
     Indication: MUSCLE CRAMP
  13. ZESTRIL [Concomitant]
     Indication: HYPERTENSION
  14. VITAMIN B-12 [Concomitant]
     Route: 030
     Dates: start: 20030207, end: 20030311

REACTIONS (2)
  - GENERAL PHYSICAL HEALTH DETERIORATION [None]
  - MENTAL STATUS CHANGES [None]
